FAERS Safety Report 13925602 (Version 1)
Quarter: 2017Q3

REPORT INFORMATION
  Report Type: Spontaneous
  Country: IT (occurrence: IT)
  Receive Date: 20170831
  Receipt Date: 20170831
  Transmission Date: 20171127
  Serious: Yes (Hospitalization)
  Sender: FDA-Public Use
  Company Number: IT-BAYER-2017-166869

PATIENT
  Age: 28 Year
  Weight: 78.96 kg

DRUGS (1)
  1. CIPROXIN 1000 MG [Suspect]
     Active Substance: CIPROFLOXACIN
     Indication: PROSTATITIS
     Dosage: DAILY DOSE 1000 MG
     Route: 048
     Dates: start: 20170819, end: 20170823

REACTIONS (1)
  - Hepatitis [Recovering/Resolving]

NARRATIVE: CASE EVENT DATE: 20170823
